FAERS Safety Report 6536727-5 (Version None)
Quarter: 2010Q1

REPORT INFORMATION
  Report Type: 
  Country: None (occurrence: None)
  Receive Date: 20100113
  Receipt Date: 20100108
  Transmission Date: 20100710
  Serious: Yes (Hospitalization, Other)
  Sender: FDA-Public Use
  Company Number: US-PFIZER INC-2010003858

PATIENT
  Sex: Female
  Weight: 40 kg

DRUGS (1)
  1. CHANTIX [Suspect]
     Indication: SMOKING CESSATION THERAPY
     Dosage: 0.5 MG, UNK
     Route: 048
     Dates: start: 20091222, end: 20100103

REACTIONS (12)
  - ABNORMAL BEHAVIOUR [None]
  - AGGRESSION [None]
  - ANGER [None]
  - DEHYDRATION [None]
  - DEPRESSION [None]
  - DISTURBANCE IN ATTENTION [None]
  - EATING DISORDER [None]
  - FEELING ABNORMAL [None]
  - INSOMNIA [None]
  - MOOD ALTERED [None]
  - THINKING ABNORMAL [None]
  - VOMITING [None]
